FAERS Safety Report 8220752-2 (Version None)
Quarter: 2012Q1

REPORT INFORMATION
  Report Type: 
  Country: None (occurrence: None)
  Receive Date: 20120320
  Receipt Date: 20120312
  Transmission Date: 20120608
  Serious: Yes (Other)
  Sender: FDA-Public Use
  Company Number: SE-UCBSA-038037

PATIENT
  Sex: Female

DRUGS (1)
  1. KEPPRA [Suspect]

REACTIONS (6)
  - DEPRESSION [None]
  - AGGRESSION [None]
  - WEIGHT INCREASED [None]
  - SUICIDAL IDEATION [None]
  - SELF INJURIOUS BEHAVIOUR [None]
  - SKIN STRIAE [None]
